FAERS Safety Report 4407860-9 (Version None)
Quarter: 2004Q3

REPORT INFORMATION
  Report Type: 
  Country: None (occurrence: None)
  Receive Date: 20040726
  Receipt Date: 20020627
  Transmission Date: 20050211
  Serious: Yes (Death)
  Sender: FDA-Public Use
  Company Number: PHRM2002FR01777

PATIENT
  Age: 22 Year
  Sex: Female

DRUGS (1)
  1. SIMULECT [Suspect]
     Indication: LIVER TRANSPLANT
     Dosage: 20 MG DAILY
     Route: 042

REACTIONS (1)
  - CARDIAC FAILURE [None]
